FAERS Safety Report 16166147 (Version 1)
Quarter: 2019Q2

REPORT INFORMATION
  Report Type: Spontaneous
  Country: ES (occurrence: ES)
  Receive Date: 20190406
  Receipt Date: 20190406
  Transmission Date: 20190711
  Serious: Yes (Hospitalization)
  Sender: FDA-Public Use
  Company Number: ES-ACCORD-118704

PATIENT
  Age: 65 Year
  Sex: Male
  Weight: 100 kg

DRUGS (1)
  1. OXALIPLATIN. [Suspect]
     Active Substance: OXALIPLATIN
     Indication: PRODUCT USED FOR UNKNOWN INDICATION
     Dosage: 192.10 MG/14 DAYS,  5 MG / ML CONCENTRATE FOR SOLUTION FOR PERFUSION EFG, 1 VIAL OF 40 ML
     Route: 042
     Dates: start: 20181003, end: 20181003

REACTIONS (3)
  - Oxygen saturation decreased [Unknown]
  - Malaise [Unknown]
  - Chest discomfort [Unknown]

NARRATIVE: CASE EVENT DATE: 20181003
